FAERS Safety Report 4935203-0 (Version None)
Quarter: 2006Q1

REPORT INFORMATION
  Report Type: 
  Country: None (occurrence: None)
  Receive Date: 20060302
  Receipt Date: 20060214
  Transmission Date: 20060701
  Serious: Yes (Hospitalization)
  Sender: FDA-Public Use
  Company Number: USA0510110893

PATIENT
  Age: 69 Year
  Sex: Female

DRUGS (4)
  1. FORTEO [Suspect]
     Indication: OSTEOPOROSIS
     Dates: start: 20040901, end: 20050401
  2. FORTEO [Suspect]
     Indication: OSTEOPOROSIS
     Dates: start: 20060130
  3. FORTEO [Suspect]
  4. FORTEO PEN, 250MCG/ML(3ML) (FORTEO PEN 250MCG/ML (3ML))PEN, DISPOSABLE [Concomitant]

REACTIONS (9)
  - COMA [None]
  - DEVICE THERAPY [None]
  - INFECTION [None]
  - PHARMACEUTICAL PRODUCT COMPLAINT [None]
  - PNEUMONIA [None]
  - POST PROCEDURAL COMPLICATION [None]
  - POSTOPERATIVE INFECTION [None]
  - THROMBOSIS [None]
  - TRACHEAL OPERATION [None]
